FAERS Safety Report 9160399 (Version 2)
Quarter: 2013Q3

REPORT INFORMATION
  Report Type: Report from Study
  Country: DE (occurrence: DE)
  Receive Date: 20130313
  Receipt Date: 20130712
  Transmission Date: 20140515
  Serious: Yes (Hospitalization)
  Sender: FDA-Public Use
  Company Number: DE-SANOFI-AVENTIS-2013SA024727

PATIENT
  Age: 70 Year
  Sex: Male

DRUGS (10)
  1. DOCETAXEL [Suspect]
     Indication: GASTROOESOPHAGEAL CANCER
     Route: 041
     Dates: start: 20130208, end: 20130208
  2. OXALIPLATIN [Suspect]
     Indication: GASTROOESOPHAGEAL CANCER
     Route: 041
     Dates: start: 20130208, end: 20130208
  3. 5-FU [Suspect]
     Indication: GASTROOESOPHAGEAL CANCER
     Route: 041
     Dates: start: 20130208, end: 20130208
  4. FOLINIC ACID [Suspect]
     Indication: GASTROOESOPHAGEAL CANCER
     Route: 042
     Dates: start: 20130208, end: 20130208
  5. PANTOPRAZOLE [Concomitant]
  6. CARVEDILOL [Concomitant]
  7. DOXAZOSIN [Concomitant]
  8. NITRENDIPINE [Concomitant]
  9. FRESUBIN [Concomitant]
  10. MONO-EMBOLEX [Concomitant]
     Route: 058

REACTIONS (2)
  - Impaired healing [Recovered/Resolved]
  - Failure to anastomose [Recovered/Resolved]
